FAERS Safety Report 23460095 (Version 2)
Quarter: 2024Q1

REPORT INFORMATION
  Report Type: Spontaneous
  Country: GB (occurrence: GB)
  Receive Date: 20240131
  Receipt Date: 20240212
  Transmission Date: 20240409
  Serious: Yes (Disabling)
  Sender: FDA-Public Use
  Company Number: GB-MHRA-MED-202303170827131930-VRCPZ

PATIENT

DRUGS (3)
  1. ESOMEPRAZOLE [Suspect]
     Active Substance: ESOMEPRAZOLE
     Indication: Reflux laryngitis
     Dosage: 40 MILLIGRAM, AFTER EVERY MEAL
     Route: 065
  2. ESOMEPRAZOLE [Suspect]
     Active Substance: ESOMEPRAZOLE
     Dosage: UNK
     Route: 065
  3. ALGINIC ACID\ALUMINUM HYDROXIDE\MAGNESIUM TRISILICATE [Concomitant]
     Active Substance: ALGINIC ACID\ALUMINUM HYDROXIDE\MAGNESIUM TRISILICATE
     Indication: Product used for unknown indication
     Dosage: AFTER EVERY MEAL
     Route: 065

REACTIONS (10)
  - Anxiety [Not Recovered/Not Resolved]
  - Fatigue [Not Recovered/Not Resolved]
  - Feeling abnormal [Unknown]
  - Heart rate increased [Unknown]
  - Muscle twitching [Unknown]
  - Dehydration [Unknown]
  - Muscular weakness [Not Recovered/Not Resolved]
  - Insomnia [Not Recovered/Not Resolved]
  - Abdominal pain upper [Unknown]
  - Hyperhidrosis [Unknown]

NARRATIVE: CASE EVENT DATE: 20221230
